FAERS Safety Report 14949755 (Version 2)
Quarter: 2018Q3

REPORT INFORMATION
  Report Type: Report from Study
  Country: None (occurrence: US)
  Receive Date: 20180529
  Receipt Date: 20180821
  Transmission Date: 20181010
  Serious: Yes (Other)
  Sender: FDA-Public Use
  Company Number: US-ABBVIE-17K-163-2030418-00

PATIENT
  Age: 55 Year
  Sex: Female

DRUGS (2)
  1. HUMIRA [Suspect]
     Active Substance: ADALIMUMAB
     Indication: CROHN^S DISEASE
     Route: 058
  2. HUMIRA [Suspect]
     Active Substance: ADALIMUMAB
     Indication: COLITIS ULCERATIVE

REACTIONS (16)
  - Multiple sclerosis [Not Recovered/Not Resolved]
  - Neck surgery [Not Recovered/Not Resolved]
  - Intervertebral disc degeneration [Not Recovered/Not Resolved]
  - Arthritis [Not Recovered/Not Resolved]
  - Osteoarthritis [Not Recovered/Not Resolved]
  - Condition aggravated [Not Recovered/Not Resolved]
  - Goitre [Unknown]
  - Crohn^s disease [Not Recovered/Not Resolved]
  - Stress [Recovering/Resolving]
  - Grip strength decreased [Recovering/Resolving]
  - Dysphagia [Unknown]
  - Condition aggravated [Recovered/Resolved]
  - Depression [Not Recovered/Not Resolved]
  - Influenza [Recovering/Resolving]
  - Viral infection [Recovered/Resolved]
  - Migraine [Not Recovered/Not Resolved]

NARRATIVE: CASE EVENT DATE: 2007
